FAERS Safety Report 20900565 (Version 2)
Quarter: 2022Q2

REPORT INFORMATION
  Report Type: Other
  Country: BY (occurrence: None)
  Receive Date: 20220601
  Receipt Date: 20220603
  Transmission Date: 20220721
  Serious: Yes (Other)
  Sender: FDA-Public Use
  Company Number: BY-ROCHE-3104660

PATIENT
  Age: 14 Year
  Sex: Male
  Weight: 71 kg

DRUGS (12)
  1. MYCOPHENOLATE MOFETIL [Suspect]
     Active Substance: MYCOPHENOLATE MOFETIL
     Indication: Prophylaxis against graft versus host disease
     Route: 065
  2. CYCLOSPORINE [Suspect]
     Active Substance: CYCLOSPORINE
     Indication: Prophylaxis against graft versus host disease
     Route: 065
  3. FLUCONAZOLE [Concomitant]
     Active Substance: FLUCONAZOLE
  4. SULFAMETHOXAZOLE\TRIMETHOPRIM [Concomitant]
     Active Substance: SULFAMETHOXAZOLE\TRIMETHOPRIM
     Indication: Antifungal prophylaxis
  5. ACYCLOVIR [Concomitant]
     Active Substance: ACYCLOVIR
  6. TEICOPLANIN [Concomitant]
     Active Substance: TEICOPLANIN
  7. MEROPENEM [Concomitant]
     Active Substance: MEROPENEM
  8. GANCICLOVIR [Concomitant]
     Active Substance: GANCICLOVIR
     Indication: Human herpesvirus 6 infection
  9. POSACONAZOLE [Concomitant]
     Active Substance: POSACONAZOLE
  10. FLUCONAZOLE [Concomitant]
     Active Substance: FLUCONAZOLE
  11. AMPHOTERICIN B [Concomitant]
     Active Substance: AMPHOTERICIN B
     Route: 065
  12. AMPHOTERICIN B [Concomitant]
     Active Substance: AMPHOTERICIN B
     Route: 042

REACTIONS (4)
  - Graft versus host disease [Unknown]
  - Systemic inflammatory response syndrome [Recovered/Resolved]
  - Pyrexia [Recovered/Resolved]
  - Rash [Recovered/Resolved]
